FAERS Safety Report 5300450-5 (Version None)
Quarter: 2007Q2

REPORT INFORMATION
  Report Type: 
  Country: None (occurrence: None)
  Receive Date: 20070418
  Receipt Date: 20070410
  Transmission Date: 20071010
  Serious: Yes (Life-Threatening, Hospitalization)
  Sender: FDA-Public Use
  Company Number: NL-AVENTIS-200711197GDDC

PATIENT
  Age: 60 Year
  Sex: Female

DRUGS (4)
  1. ARAVA [Suspect]
     Dosage: DOSE: UNK
     Route: 048
     Dates: start: 20060901, end: 20061215
  2. RIVOTRIL [Concomitant]
  3. SELOKEEN                           /00376903/ [Concomitant]
  4. INFLIXIMAB [Concomitant]
     Dosage: DOSE: UNK
     Route: 042
     Dates: start: 20060901, end: 20070101

REACTIONS (6)
  - ABDOMINAL PAIN [None]
  - ASCITES [None]
  - HEPATIC FAILURE [None]
  - HEPATITIS TOXIC [None]
  - JAUNDICE [None]
  - VOMITING [None]
